FAERS Safety Report 11937021 (Version 1)
Quarter: 2016Q1

REPORT INFORMATION
  Report Type: Spontaneous
  Country: US (occurrence: US)
  Receive Date: 20160121
  Receipt Date: 20160121
  Transmission Date: 20160526
  Serious: Yes (Hospitalization, Other)
  Sender: FDA-Public Use
  Company Number: US-DSJP-DSU-2015-120153

PATIENT

DRUGS (6)
  1. BENICAR HCT [Suspect]
     Active Substance: HYDROCHLOROTHIAZIDE\OLMESARTAN MEDOXOMIL
     Dosage: 40/12.5MG, QD
     Route: 048
     Dates: end: 20101207
  2. BENICAR [Suspect]
     Active Substance: OLMESARTAN MEDOXOMIL
     Dosage: 20 MG, QD
     Dates: start: 201310
  3. BENICAR HCT [Suspect]
     Active Substance: HYDROCHLOROTHIAZIDE\OLMESARTAN MEDOXOMIL
     Dosage: UNK
     Dates: start: 2006
  4. BENICAR HCT [Suspect]
     Active Substance: HYDROCHLOROTHIAZIDE\OLMESARTAN MEDOXOMIL
     Indication: HYPERTENSION
     Dosage: 40/25MG, QD
     Route: 048
     Dates: start: 20101207, end: 20130902
  5. TRIBENZOR [Suspect]
     Active Substance: AMLODIPINE BESYLATE\HYDROCHLOROTHIAZIDE\OLMESARTAN MEDOXOMIL
     Indication: PRODUCT USED FOR UNKNOWN INDICATION
     Dosage: UNK
  6. BENICAR [Suspect]
     Active Substance: OLMESARTAN MEDOXOMIL
     Indication: HYPERTENSION
     Dosage: 40 MG, QD
     Dates: start: 2013, end: 201310

REACTIONS (24)
  - Gastrointestinal stromal tumour [Unknown]
  - Gastrointestinal sounds abnormal [Unknown]
  - Bowel movement irregularity [Unknown]
  - Diverticulum intestinal [Unknown]
  - Gastric ulcer [Unknown]
  - Cholecystitis chronic [Unknown]
  - Gallbladder polyp [Unknown]
  - Gastroduodenitis [Unknown]
  - Ureteral disorder [Unknown]
  - Adenoma benign [Unknown]
  - Acute kidney injury [Unknown]
  - Hiatus hernia [Unknown]
  - Depression [Unknown]
  - Malabsorption [Unknown]
  - Gastrooesophageal reflux disease [Unknown]
  - Liver function test abnormal [Unknown]
  - Ileus [Unknown]
  - Cholesterosis [Unknown]
  - Intestinal metaplasia [Unknown]
  - Reactive gastropathy [Unknown]
  - Small intestinal obstruction [Unknown]
  - Renal disorder [Unknown]
  - Pancytopenia [Unknown]
  - Gastrooesophageal reflux disease [Unknown]

NARRATIVE: CASE EVENT DATE: 20110719
